FAERS Safety Report 8866969 (Version 1)
Quarter: 2012Q4

REPORT INFORMATION
  Report Type: 
  Country: US (occurrence: US)
  Receive Date: 20121025
  Receipt Date: 20121025
  Transmission Date: 20130627
  Serious: No
  Sender: FDA-Public Use
  Company Number: US-AMGEN-USASP2012014157

PATIENT
  Age: 27 Year
  Sex: Male
  Weight: 83.9 kg

DRUGS (3)
  1. ENBREL [Suspect]
     Indication: PRODUCT USED FOR UNKNOWN INDICATION
     Dosage: UNK
  2. NAPROXEN [Concomitant]
     Dosage: 500 mg, UNK
  3. OMEPRAZOL                          /00661201/ [Concomitant]
     Dosage: 40 mg, UNK

REACTIONS (1)
  - Nasopharyngitis [Unknown]
